FAERS Safety Report 9388360 (Version 1)
Quarter: 2013Q3

REPORT INFORMATION
  Report Type: Spontaneous
  Country: JP (occurrence: JP)
  Receive Date: 20130708
  Receipt Date: 20130708
  Transmission Date: 20140515
  Serious: Yes (Other)
  Sender: FDA-Public Use
  Company Number: JP-TEVA-416194ISR

PATIENT
  Age: 71 Year
  Sex: Female

DRUGS (1)
  1. MEXILETINE [Suspect]
     Indication: ARRHYTHMIA
     Route: 065

REACTIONS (5)
  - Drug reaction with eosinophilia and systemic symptoms [Recovering/Resolving]
  - Fulminant type 1 diabetes mellitus [Recovering/Resolving]
  - Autoimmune thyroiditis [Unknown]
  - Human herpesvirus 6 infection [Unknown]
  - Cytomegalovirus test positive [Unknown]
